FAERS Safety Report 15537854 (Version 6)
Quarter: 2019Q1

REPORT INFORMATION
  Report Type: Spontaneous
  Country: FR (occurrence: FR)
  Receive Date: 20181022
  Receipt Date: 20190131
  Transmission Date: 20190417
  Serious: Yes (Hospitalization, Disabling, Other)
  Sender: FDA-Public Use
  Company Number: PHHY2018FR120886

PATIENT
  Age: 28 Year
  Sex: Female
  Weight: 60 kg

DRUGS (14)
  1. ESTRADIOL. [Suspect]
     Active Substance: ESTRADIOL
     Indication: PRODUCT USED FOR UNKNOWN INDICATION
     Dosage: 1 DF, QD (1 TABLET/DAY FOR 21 DAYS PER MONTH (1 UG/LITRE)
     Route: 048
     Dates: start: 2008, end: 20170920
  2. CYPROTERONE ACETATE [Suspect]
     Active Substance: CYPROTERONE ACETATE
     Dosage: 0.5 DF (UG/LITRE), QD (TABLET/D FOR 21 DAYS PER MONTH)
     Route: 048
     Dates: start: 20161124
  3. CYPROTERONE ACETATE [Suspect]
     Active Substance: CYPROTERONE ACETATE
     Indication: ALOPECIA
     Dosage: 0.5 DF (UG/LITRE),  UNK  (TABLET/D FOR 21 DAYS PER MONTH)
     Route: 048
     Dates: start: 20070528
  4. CYPROTERONE ACETATE [Suspect]
     Active Substance: CYPROTERONE ACETATE
     Indication: ACNE
     Dosage: 0.5 DF (UG/LITRE),  QD (TABLET/D FOR 21 DAYS PER MONTH)
     Route: 048
     Dates: start: 20100820
  5. CYPROTERONE ACETATE [Suspect]
     Active Substance: CYPROTERONE ACETATE
     Dosage: 0.5 DF  (UG/LITRE), QD (TABLET/D FOR 21 DAYS PER MONTH)
     Route: 048
     Dates: start: 20130816
  6. CYPROTERONE ACETATE [Suspect]
     Active Substance: CYPROTERONE ACETATE
     Dosage: 0.5 DF(UG/LITRE) , QD (FOR 21 DAYS PER MONTH)
     Route: 048
     Dates: start: 20140818
  7. CYPROTERONE BIOGARAN [Suspect]
     Active Substance: CYPROTERONE ACETATE
     Indication: PRODUCT USED FOR UNKNOWN INDICATION
     Dosage: UNK
     Route: 065
  8. OROMONE [Suspect]
     Active Substance: ESTRADIOL
     Indication: PRODUCT USED FOR UNKNOWN INDICATION
     Dosage: UNK
     Route: 065
  9. CYPROTERONE ACETATE [Suspect]
     Active Substance: CYPROTERONE ACETATE
     Dosage: 0.5 DF (UG/LITRE),  QD (1/2 TABLET FOR 1 DAYS PER MONTH)
     Route: 048
  10. CYPROTERONE ACETATE [Suspect]
     Active Substance: CYPROTERONE ACETATE
     Dosage: 0.5 DF (UG/LITRE), QD (FOR 21 DAYS PER MONTH)
     Route: 048
     Dates: start: 20170920
  11. CYPROTERONACETAAT/ETHINYLESTRADIOL MERCK [Suspect]
     Active Substance: CYPROTERONE ACETATE\ETHINYL ESTRADIOL
     Indication: ALOPECIA
     Dosage: 2 MG, UNK (BEFORE 28-MAY-2007)
     Route: 065
  12. ANDROCUR [Suspect]
     Active Substance: CYPROTERONE ACETATE
     Indication: PRODUCT USED FOR UNKNOWN INDICATION
     Dosage: UNK
     Route: 065
  13. CYPROTERONE ACETATE [Suspect]
     Active Substance: CYPROTERONE ACETATE
     Dosage: UNK (1/2 TABLET FOR 1 DAYS PER MONTH)
     Route: 048
  14. CYPROTERONE ACETATE [Suspect]
     Active Substance: CYPROTERONE ACETATE
     Dosage: UNK (TABLET/D FOR 21 DAYS PER MONTH)
     Route: 048

REACTIONS (26)
  - Disorientation [Unknown]
  - Balance disorder [Not Recovered/Not Resolved]
  - Facial paralysis [Not Recovered/Not Resolved]
  - Weight increased [Not Recovered/Not Resolved]
  - Coordination abnormal [Not Recovered/Not Resolved]
  - Muscular weakness [None]
  - Muscular weakness [Not Recovered/Not Resolved]
  - Hydrocephalus [None]
  - Hemiplegia [Not Recovered/Not Resolved]
  - Eye haematoma [Unknown]
  - Hemiparaesthesia [Not Recovered/Not Resolved]
  - Meningioma [Not Recovered/Not Resolved]
  - Diplopia [Not Recovered/Not Resolved]
  - Cognitive disorder [Unknown]
  - Dysarthria [Not Recovered/Not Resolved]
  - Gait disturbance [Not Recovered/Not Resolved]
  - Memory impairment [Unknown]
  - Aphasia [Unknown]
  - Aphasia [None]
  - Nervous system disorder [Unknown]
  - Language disorder [Unknown]
  - Muscular weakness [Not Recovered/Not Resolved]
  - Hemiplegia [Unknown]
  - Fatigue [Not Recovered/Not Resolved]
  - Paraesthesia [Not Recovered/Not Resolved]
  - Brain compression [None]

NARRATIVE: CASE EVENT DATE: 2017
